FAERS Safety Report 11716546 (Version 2)
Quarter: 2015Q4

REPORT INFORMATION
  Report Type: Spontaneous
  Country: US (occurrence: US)
  Receive Date: 20151109
  Receipt Date: 20151118
  Transmission Date: 20160304
  Serious: Yes (Other)
  Sender: FDA-Public Use
  Company Number: US-LPDUSPRD-20150888

PATIENT
  Age: 77 Year
  Sex: Female

DRUGS (2)
  1. MELOXICAM. [Concomitant]
     Active Substance: MELOXICAM
     Dosage: DOSE NOT PROVIDED
     Route: 065
  2. CYANOCOBALAMIN INJECTION, USP (0031-25) [Suspect]
     Active Substance: CYANOCOBALAMIN
     Dosage: DOSE NOT PROVIDED
     Route: 030

REACTIONS (3)
  - Peripheral swelling [Unknown]
  - Injection site bruising [Unknown]
  - Vasodilatation [Unknown]

NARRATIVE: CASE EVENT DATE: 201510
